FAERS Safety Report 15259130 (Version 1)
Quarter: 2018Q3

REPORT INFORMATION
  Report Type: Spontaneous
  Country: US (occurrence: US)
  Receive Date: 20180718
  Receipt Date: 20180718
  Transmission Date: 20181010
  Serious: Yes (Other)
  Sender: FDA-Public Use
  Company Number: None

PATIENT
  Age: 31 Year
  Sex: Female
  Weight: 86.18 kg

DRUGS (1)
  1. MIRENA [Suspect]
     Active Substance: LEVONORGESTREL

REACTIONS (5)
  - Headache [None]
  - Vision blurred [None]
  - Neck pain [None]
  - Tinnitus [None]
  - Musculoskeletal pain [None]

NARRATIVE: CASE EVENT DATE: 20180501
